FAERS Safety Report 11502449 (Version 3)
Quarter: 2017Q3

REPORT INFORMATION
  Report Type: Spontaneous
  Country: US (occurrence: US)
  Receive Date: 20150914
  Receipt Date: 20170914
  Transmission Date: 20171127
  Serious: Yes (Other)
  Sender: FDA-Public Use
  Company Number: US-ASTELLAS-2015US020719

PATIENT
  Sex: Male

DRUGS (4)
  1. OXYBUTYNIN [Concomitant]
     Active Substance: OXYBUTYNIN
     Indication: PRODUCT USED FOR UNKNOWN INDICATION
     Route: 065
  2. GABAPENTIN. [Concomitant]
     Active Substance: GABAPENTIN
     Indication: PRODUCT USED FOR UNKNOWN INDICATION
     Route: 065
  3. XTANDI [Suspect]
     Active Substance: ENZALUTAMIDE
     Indication: PROSTATE CANCER
     Route: 048
     Dates: start: 20150119
  4. LISINOPRIL/HCTZ [Concomitant]
     Active Substance: HYDROCHLOROTHIAZIDE\LISINOPRIL
     Indication: PRODUCT USED FOR UNKNOWN INDICATION
     Dosage: 20/25 (UNKNOWN UNITS), UNKNOWN FREQ.
     Route: 065

REACTIONS (9)
  - Ear pain [Recovering/Resolving]
  - Toothache [Recovering/Resolving]
  - Urinary incontinence [Not Recovered/Not Resolved]
  - Epistaxis [Unknown]
  - Product packaging quantity issue [Unknown]
  - Arthritis [Not Recovered/Not Resolved]
  - Back pain [Recovered/Resolved]
  - Nasal dryness [Unknown]
  - Headache [Recovering/Resolving]

NARRATIVE: CASE EVENT DATE: 2015
